FAERS Safety Report 5168838-3 (Version None)
Quarter: 2006Q4

REPORT INFORMATION
  Report Type: 
  Country: None (occurrence: None)
  Receive Date: 20061205
  Receipt Date: 20061205
  Transmission Date: 20070319
  Serious: Yes (Disabling)
  Sender: FDA-Public Use
  Company Number: None

PATIENT
  Age: 25 Year
  Sex: Female
  Weight: 111.5849 kg

DRUGS (5)
  1. GABAPENTIN [Suspect]
     Indication: BIPOLAR DISORDER
     Dosage: 300 MG BID PO
     Route: 048
     Dates: start: 20061023, end: 20061210
  2. SINGULAIR [Concomitant]
  3. ADVAIR DISKUS 100/50 [Concomitant]
  4. LAMICTAL [Concomitant]
  5. ALBUETEROL [Concomitant]

REACTIONS (1)
  - VAGINAL HAEMORRHAGE [None]
